FAERS Safety Report 23192121 (Version 3)
Quarter: 2025Q4

REPORT INFORMATION
  Report Type: Spontaneous
  Country: JP (occurrence: JP)
  Receive Date: 20231116
  Receipt Date: 20251102
  Transmission Date: 20260118
  Serious: Yes (Other)
  Sender: AMGEN
  Company Number: JP-DSJP-DSJ-2023-145976

PATIENT
  Age: 71 Year
  Sex: Female

DRUGS (4)
  1. DENOSUMAB [Suspect]
     Active Substance: DENOSUMAB
     Indication: Metastases to bone
     Dosage: UNK
     Route: 065
     Dates: start: 20190206, end: 20201028
  2. TAMOXIFEN [Concomitant]
     Active Substance: TAMOXIFEN
     Indication: Adjuvant therapy
     Dosage: UNK
     Route: 065
     Dates: start: 1996
  3. INVEGA [Concomitant]
     Active Substance: PALIPERIDONE
     Indication: Adjuvant therapy
     Dosage: UNK
     Route: 065
  4. LETROZOLE [Concomitant]
     Active Substance: LETROZOLE
     Indication: Adjuvant therapy
     Dosage: UNK
     Route: 065

REACTIONS (1)
  - Osteomyelitis [Recovered/Resolved]
